FAERS Safety Report 15451841 (Version 1)
Quarter: 2018Q3

REPORT INFORMATION
  Report Type: Spontaneous
  Country: US (occurrence: US)
  Receive Date: 20180927
  Receipt Date: 20180927
  Transmission Date: 20181010
  Serious: Yes (Hospitalization, Disabling)
  Sender: FDA-Public Use
  Company Number: None

PATIENT

DRUGS (14)
  1. LISINOPRIL. [Concomitant]
     Active Substance: LISINOPRIL
  2. MSM [Concomitant]
     Active Substance: DIMETHYL SULFONE
  3. FLEX SEED [Concomitant]
  4. FABACIL [Concomitant]
  5. POTASSIUM [Concomitant]
     Active Substance: POTASSIUM
  6. MILK THISTLE [Concomitant]
     Active Substance: DIETARY SUPPLEMENT\HERBALS\MILK THISTLE
  7. CORDICEPS [Concomitant]
  8. HAWAIAN ASTAXANTAIN [Concomitant]
  9. COD LIVER OIL [Concomitant]
     Active Substance: COD LIVER OIL
  10. WEST WHEAT GRASS [Concomitant]
     Active Substance: PASCOPYRUM SMITHII POLLEN
  11. GARLIC. [Concomitant]
     Active Substance: GARLIC
  12. ASCI BERRIES [Concomitant]
  13. WELLBUTRIN [Suspect]
     Active Substance: BUPROPION HYDROCHLORIDE
     Indication: DRUG THERAPY
  14. GOJI BERRIES [Concomitant]

REACTIONS (10)
  - Swelling face [None]
  - Urticaria [None]
  - Dry mouth [None]
  - Renal disorder [None]
  - Musculoskeletal stiffness [None]
  - Lymphadenopathy [None]
  - Anaemia [None]
  - Hypothyroidism [None]
  - Blister [None]
  - Muscular weakness [None]
